FAERS Safety Report 14223982 (Version 1)
Quarter: 2017Q4

REPORT INFORMATION
  Report Type: Spontaneous
  Country: US (occurrence: US)
  Receive Date: 20171122
  Receipt Date: 20171122
  Transmission Date: 20180321
  Serious: Yes (Hospitalization)
  Sender: FDA-Public Use
  Company Number: None

PATIENT
  Age: 38 Year
  Sex: Female
  Weight: 68 kg

DRUGS (1)
  1. LAMOTRIGINE. [Suspect]
     Active Substance: LAMOTRIGINE
     Route: 048
     Dates: start: 20171023, end: 20171116

REACTIONS (6)
  - Rash [None]
  - Viral infection [None]
  - Swelling face [None]
  - Dermatitis [None]
  - Lymphadenopathy [None]
  - Erythema multiforme [None]

NARRATIVE: CASE EVENT DATE: 20171116
